FAERS Safety Report 17021628 (Version 2)
Quarter: 2020Q1

REPORT INFORMATION
  Report Type: Spontaneous
  Country: NL (occurrence: NL)
  Receive Date: 20191112
  Receipt Date: 20200203
  Transmission Date: 20200409
  Serious: Yes (Hospitalization)
  Sender: FDA-Public Use
  Company Number: NL-MYLANLABS-2019M1107036

PATIENT
  Sex: Female
  Weight: 69 kg

DRUGS (3)
  1. PALBOCICLIB [Concomitant]
     Active Substance: PALBOCICLIB
     Dosage: 1DD 125 MG VOOR 3 WEKEN, DAN 1 WEEK RUST
  2. FUROSEMIDE. [Concomitant]
     Active Substance: FUROSEMIDE
     Dosage: Z.N. 1DD 40 MG
     Route: 048
  3. FULVESTRANT. [Suspect]
     Active Substance: FULVESTRANT
     Indication: BREAST CANCER METASTATIC
     Dosage: 1X PER MAAND 500 MILLIGRAM
     Route: 030
     Dates: start: 201702

REACTIONS (2)
  - Product administration error [Recovering/Resolving]
  - Injection site abscess [Recovering/Resolving]
